FAERS Safety Report 7627959-3 (Version None)
Quarter: 2011Q3

REPORT INFORMATION
  Report Type: 
  Country: None (occurrence: None)
  Receive Date: 20110722
  Receipt Date: 20110714
  Transmission Date: 20111222
  Serious: Yes (Hospitalization)
  Sender: FDA-Public Use
  Company Number: US-BIOGENIDEC-2010BI041113

PATIENT
  Age: 31 Year
  Sex: Female

DRUGS (2)
  1. TYSABRI [Suspect]
     Route: 042
     Dates: start: 20100908, end: 20100908
  2. TYSABRI [Suspect]
     Indication: MULTIPLE SCLEROSIS
     Route: 042
     Dates: start: 20080108, end: 20100526

REACTIONS (6)
  - GLUCOSE TOLERANCE IMPAIRED [None]
  - INFLUENZA [None]
  - VERTIGO [None]
  - NAUSEA [None]
  - CAESAREAN SECTION [None]
  - HYPERTENSION [None]
